FAERS Safety Report 4566894-4 (Version None)
Quarter: 2005Q1

REPORT INFORMATION
  Report Type: 
  Country: None (occurrence: None)
  Receive Date: 20050201
  Receipt Date: 20030409
  Transmission Date: 20050727
  Serious: Yes (Other)
  Sender: FDA-Public Use
  Company Number: US-BRISTOL-MYERS SQUIBB COMPANY-12236063

PATIENT
  Age: 17 Year
  Sex: Female

DRUGS (2)
  1. STADOL [Suspect]
     Indication: MIGRAINE
     Route: 045
     Dates: start: 19940804, end: 19951231
  2. STADOL [Suspect]
     Indication: MIGRAINE
     Route: 030
     Dates: start: 19951025

REACTIONS (6)
  - ASTHENIA [None]
  - DEPENDENCE [None]
  - DIZZINESS [None]
  - DYSPNOEA [None]
  - HYPERSOMNIA [None]
  - RESPIRATORY RATE DECREASED [None]
